FAERS Safety Report 13134778 (Version 2)
Quarter: 2017Q1

REPORT INFORMATION
  Report Type: Spontaneous
  Country: CH (occurrence: CH)
  Receive Date: 20170120
  Receipt Date: 20170206
  Transmission Date: 20170428
  Serious: Yes (Death, Other)
  Sender: FDA-Public Use
  Company Number: CH-BAYER-2016-235351

PATIENT
  Age: 57 Year
  Sex: Male

DRUGS (18)
  1. ELTROMBOPAG [Concomitant]
     Active Substance: ELTROMBOPAG
     Dosage: 50 MG, QD
     Dates: start: 20160823
  2. METAMIZOL [Concomitant]
     Active Substance: METAMIZOLE SODIUM
     Dosage: AS NEEDED
  3. NEXAVAR [Suspect]
     Active Substance: SORAFENIB
     Indication: ACUTE MYELOID LEUKAEMIA
     Dosage: 400 MG, BID
     Route: 048
     Dates: start: 20150714
  4. NEXAVAR [Suspect]
     Active Substance: SORAFENIB
     Indication: ACUTE MYELOID LEUKAEMIA
     Dosage: UNK
     Dates: start: 20160617, end: 20160726
  5. POSACONAZOLE [Concomitant]
     Active Substance: POSACONAZOLE
  6. NORVASC [Concomitant]
     Active Substance: AMLODIPINE BESYLATE
  7. VI-DE3 [Concomitant]
  8. VITAMIN B1 [Concomitant]
     Active Substance: THIAMINE HYDROCHLORIDE
  9. DECITABINE. [Suspect]
     Active Substance: DECITABINE
     Dosage: UNK
     Dates: start: 20160912, end: 20160914
  10. ELTROMBOPAG [Concomitant]
     Active Substance: ELTROMBOPAG
  11. VITAMIN B6 [Concomitant]
     Active Substance: PYRIDOXINE HYDROCHLORIDE
  12. NEXAVAR [Suspect]
     Active Substance: SORAFENIB
     Indication: ACUTE MYELOID LEUKAEMIA
     Dosage: 200 MG, BID
     Route: 048
     Dates: end: 20160105
  13. NEXAVAR [Suspect]
     Active Substance: SORAFENIB
     Indication: ACUTE MYELOID LEUKAEMIA
     Dosage: UNK
     Dates: start: 20160513, end: 20160522
  14. DAFALGAN [Concomitant]
     Active Substance: ACETAMINOPHEN
     Dosage: AS NEEDED
  15. DECITABINE. [Suspect]
     Active Substance: DECITABINE
     Dosage: 44 MG PER DAY (1 TO 5)
     Dates: start: 20150713, end: 20160806
  16. VALTREX [Concomitant]
     Active Substance: VALACYCLOVIR HYDROCHLORIDE
  17. BACTRIM-FORTE [Concomitant]
     Active Substance: SULFAMETHOXAZOLE\TRIMETHOPRIM
     Dosage: 800/160 MG 3XPER WEEK (MONDAY, WEDNESDAY, FRIDAY)
  18. CYKLOKAPRON [Concomitant]
     Active Substance: TRANEXAMIC ACID

REACTIONS (6)
  - Pancytopenia [None]
  - Myalgia [Recovered/Resolved]
  - Acute myeloid leukaemia [Fatal]
  - Off label use [None]
  - Haematotoxicity [None]
  - Thrombocytopenia [Recovered/Resolved]

NARRATIVE: CASE EVENT DATE: 20160106
